FAERS Safety Report 4587504-6 (Version None)
Quarter: 2005Q1

REPORT INFORMATION
  Report Type: 
  Country: None (occurrence: None)
  Receive Date: 20050215
  Receipt Date: 20050131
  Transmission Date: 20050727
  Serious: Yes (Hospitalization)
  Sender: FDA-Public Use
  Company Number: CHPA2003US02266

PATIENT
  Age: 42 Year
  Sex: Female

DRUGS (18)
  1. EX-LAX LAXATIVE UNKNOWN FORMULA (NCH) (UNKNOWN) UNKNOWN [Suspect]
     Dosage: ORAL
     Route: 048
     Dates: start: 19830101
  2. CORRECTOL [Suspect]
     Dosage: ORAL
     Route: 048
     Dates: start: 19830101
  3. DULCOLAX [Suspect]
     Dosage: SEE IMAGE
     Route: 048
     Dates: start: 19951225, end: 19951225
  4. DULCOLAX [Suspect]
     Dosage: SEE IMAGE
     Route: 048
     Dates: start: 19830101
  5. SENOKOT [Suspect]
     Dosage: ORAL
     Route: 048
     Dates: start: 19830101
  6. ESTRACE [Concomitant]
  7. ZOLOFT [Concomitant]
  8. MAGNESIUM CITRATE (MAGENSIUM CITRATE) [Concomitant]
  9. VIOXX [Concomitant]
  10. TUSSIONEX (HYDROCODONE BITARTRATE, PHENYLTOLOXAMINE) [Concomitant]
  11. FLEXERIL [Concomitant]
  12. TEQUIN [Concomitant]
  13. MEDROL [Concomitant]
  14. ZITHROMAX-PACK (AZITHROMYCIN) [Concomitant]
  15. FIBERCON (POLYCARBOPHIL CALCIUM) POWDER [Concomitant]
  16. PAMELOR (NORTRIPTYLINE HYDROCHLORIDE) CAPSULE [Concomitant]
  17. REDUX IDEFENFLURAMINE HYDROCHLORIDE) [Concomitant]
  18. XANAX [Concomitant]

REACTIONS (13)
  - ANAEMIA [None]
  - ASTHENIA [None]
  - BLOOD GLUCOSE INCREASED [None]
  - CONSTIPATION [None]
  - DRUG DEPENDENCE [None]
  - DRUG INEFFECTIVE [None]
  - DYSPNOEA [None]
  - EMOTIONAL DISTRESS [None]
  - GASTROINTESTINAL HAEMORRHAGE [None]
  - HAEMORRHOIDAL HAEMORRHAGE [None]
  - INJURY [None]
  - PLATELET COUNT INCREASED [None]
  - RECTAL HAEMORRHAGE [None]
